FAERS Safety Report 11155743 (Version 1)
Quarter: 2015Q2

REPORT INFORMATION
  Report Type: Spontaneous
  Country: TW (occurrence: TW)
  Receive Date: 20150602
  Receipt Date: 20150602
  Transmission Date: 20150821
  Serious: Yes (Other)
  Sender: FDA-Public Use
  Company Number: TW-MYLANLABS-2015M1018154

PATIENT

DRUGS (10)
  1. ISOSORBIDE DINITRATE. [Concomitant]
     Active Substance: ISOSORBIDE DINITRATE
     Dosage: WITHOUT CHANGE FOR MORE THAN 1 YEAR
     Route: 065
  2. PROPRANOLOL [Concomitant]
     Active Substance: PROPRANOLOL\PROPRANOLOL HYDROCHLORIDE
     Dosage: WITHOUT CHANGE FOR MORE THAN 1 YEAR
     Route: 065
  3. DESMOPRESSIN [Concomitant]
     Active Substance: DESMOPRESSIN
     Dosage: WITHOUT CHANGE FOR MORE THAN 1 YEAR
     Route: 065
  4. BROMAZEPAM [Concomitant]
     Active Substance: BROMAZEPAM
     Dosage: WITHOUT CHANGE FOR MORE THAN 1 YEAR
     Route: 065
  5. LOSARTAN [Concomitant]
     Active Substance: LOSARTAN
     Dosage: WITHOUT CHANGE FOR MORE THAN 1 YEAR
     Route: 065
  6. TAMSULOSIN [Concomitant]
     Active Substance: TAMSULOSIN
     Dosage: WITHOUT CHANGE FOR MORE THAN 1 YEAR
     Route: 065
  7. SITAGLIPTIN [Concomitant]
     Active Substance: SITAGLIPTIN
     Dosage: WITHOUT CHANGE FOR MORE THAN 1 YEAR
     Route: 065
  8. TICLOPIDINE [Suspect]
     Active Substance: TICLOPIDINE
     Dosage: SINCE 4 MONTHS
     Route: 048
  9. ACARBOSE. [Concomitant]
     Active Substance: ACARBOSE
     Dosage: WITHOUT CHANGE FOR MORE THAN 1 YEAR
     Route: 065
  10. GLIMEPIRIDE. [Concomitant]
     Active Substance: GLIMEPIRIDE
     Dosage: WITHOUT CHANGE FOR MORE THAN 1 YEAR
     Route: 065

REACTIONS (1)
  - Subacute cutaneous lupus erythematosus [Recovered/Resolved]
